FAERS Safety Report 8059829-3 (Version None)
Quarter: 2012Q1

REPORT INFORMATION
  Report Type: 
  Country: None (occurrence: None)
  Receive Date: 20120120
  Receipt Date: 20120113
  Transmission Date: 20120608
  Serious: Yes (Other)
  Sender: FDA-Public Use
  Company Number: US-ABBOTT-12P-163-0893246-00

PATIENT
  Sex: Male
  Weight: 90.8 kg

DRUGS (9)
  1. ANDROGEL [Suspect]
     Indication: BLOOD TESTOSTERONE DECREASED
     Dosage: 4 PUMPS DAILY
     Dates: start: 20070101
  2. ANDROGEL [Suspect]
     Dates: start: 20090101
  3. ASPIRIN [Concomitant]
     Indication: PROPHYLAXIS
  4. METAMUCIL-2 [Concomitant]
     Indication: CONSTIPATION
  5. LISINOPRIL [Concomitant]
     Indication: HYPERTENSION
     Dosage: DAILY AT BEDTIME
  6. ANDROGEL [Suspect]
     Dates: start: 20081201
  7. ASPIRIN [Concomitant]
     Indication: CARDIAC DISORDER
  8. ANDROGEL [Suspect]
     Dates: start: 20100101, end: 20110201
  9. ATENOLOL [Concomitant]
     Indication: HYPERTENSION
     Dosage: IN AM

REACTIONS (10)
  - PROSTATOMEGALY [None]
  - SLEEP APNOEA SYNDROME [None]
  - NECK PAIN [None]
  - SPINAL DISORDER [None]
  - URINARY INCONTINENCE [None]
  - NOCTURIA [None]
  - URINARY RETENTION [None]
  - URINARY HESITATION [None]
  - DYSURIA [None]
  - BACK PAIN [None]
